FAERS Safety Report 8021389-0 (Version None)
Quarter: 2012Q1

REPORT INFORMATION
  Report Type: 
  Country: None (occurrence: None)
  Receive Date: 20120104
  Receipt Date: 20111230
  Transmission Date: 20120608
  Serious: Yes (Hospitalization)
  Sender: FDA-Public Use
  Company Number: IT-PFIZER INC-2012000159

PATIENT
  Age: 74 Year
  Sex: Male

DRUGS (8)
  1. DEFLAZACORT [Concomitant]
     Dosage: 7.5 MG, UNK
     Route: 048
     Dates: start: 19800101
  2. ASPIRIN [Concomitant]
     Dosage: 100 MG, UNK
     Dates: start: 20110701
  3. METHOTREXATE [Concomitant]
     Dosage: 7.5 MG, UNK
     Route: 048
     Dates: start: 19800101
  4. INFLUENZA VACCINE [Suspect]
     Indication: INFLUENZA IMMUNISATION
     Dosage: UNK
     Route: 023
     Dates: start: 20111027
  5. PANTOPRAZOLE SODIUM [Concomitant]
     Dosage: 40 MG, UNK
     Route: 048
     Dates: start: 20111107
  6. PIPERACILLIN AND TAZOBACTAM [Suspect]
     Indication: PYREXIA
     Dosage: 13.5 G, DAILY
     Route: 042
     Dates: start: 20111202, end: 20111203
  7. RAMIPRIL [Concomitant]
     Dosage: 10 MG, UNK
     Route: 048
     Dates: start: 20030101
  8. ALLOPURINOL [Concomitant]
     Dosage: 150 MG, UNK
     Route: 048
     Dates: start: 19800101

REACTIONS (4)
  - PALPITATIONS [None]
  - MALAISE [None]
  - RASH [None]
  - URTICARIA [None]
